FAERS Safety Report 13042003 (Version 1)
Quarter: 2016Q4

REPORT INFORMATION
  Report Type: Spontaneous
  Country: US (occurrence: US)
  Receive Date: 20161219
  Receipt Date: 20161219
  Transmission Date: 20170207
  Serious: No
  Sender: FDA-Public Use
  Company Number: US-ROCHE-1101803

PATIENT
  Sex: Male

DRUGS (2)
  1. INTERLEUKIN [Suspect]
     Active Substance: INTERLEUKIN NOS
     Indication: MALIGNANT MELANOMA
  2. ZELBORAF [Suspect]
     Active Substance: VEMURAFENIB
     Indication: MALIGNANT MELANOMA

REACTIONS (1)
  - Rash [Not Recovered/Not Resolved]
